FAERS Safety Report 17166846 (Version 1)
Quarter: 2019Q4

REPORT INFORMATION
  Report Type: Spontaneous
  Country: US (occurrence: US)
  Receive Date: 20191217
  Receipt Date: 20191217
  Transmission Date: 20200122
  Serious: No
  Sender: FDA-Public Use
  Company Number: US-BAUSCH-BL-2019-062370

PATIENT
  Age: 75 Year
  Sex: Female

DRUGS (1)
  1. FLUOROURACIL. [Suspect]
     Active Substance: FLUOROURACIL
     Indication: PRECANCEROUS SKIN LESION
     Dosage: ABOUT 20 YEARS AGO (SOMETIME IN SEP) AS NEEDED BASIS, FOR TWO WEEKS
     Route: 003
     Dates: end: 2019

REACTIONS (5)
  - Application site inflammation [Recovered/Resolved]
  - Product quality issue [Unknown]
  - Application site erythema [Recovered/Resolved]
  - Product physical consistency issue [Unknown]
  - Skin exfoliation [Recovered/Resolved]

NARRATIVE: CASE EVENT DATE: 2019
